FAERS Safety Report 17590222 (Version 1)
Quarter: 2020Q1

REPORT INFORMATION
  Report Type: Spontaneous
  Country: US (occurrence: US)
  Receive Date: 20200327
  Receipt Date: 20200327
  Transmission Date: 20200409
  Serious: Yes (Other)
  Sender: FDA-Public Use
  Company Number: US-MYLANLABS-2020M1032440

PATIENT
  Age: 6 Decade
  Sex: Female

DRUGS (4)
  1. CARBOPLATIN. [Suspect]
     Active Substance: CARBOPLATIN
     Indication: NEUROENDOCRINE CARCINOMA METASTATIC
     Dosage: 6 CYCLES (STANDARD-DOSE)
     Route: 065
  2. ETOPOSIDE. [Suspect]
     Active Substance: ETOPOSIDE
     Indication: NEUROENDOCRINE CARCINOMA METASTATIC
     Dosage: 6 CYCLES (STANDARD-DOSE)
     Route: 065
  3. IPILIMUMAB [Suspect]
     Active Substance: IPILIMUMAB
     Indication: NEUROENDOCRINE CARCINOMA METASTATIC
     Dosage: 1 MILLIGRAM/KILOGRAM
     Route: 065
  4. NIVOLUMAB [Suspect]
     Active Substance: NIVOLUMAB
     Indication: NEUROENDOCRINE CARCINOMA METASTATIC
     Dosage: 3 MILLIGRAM/KILOGRAM
     Route: 065

REACTIONS (1)
  - Neutropenic sepsis [Recovered/Resolved]
